FAERS Safety Report 6366504-X (Version None)
Quarter: 2009Q3

REPORT INFORMATION
  Report Type: 
  Country: None (occurrence: None)
  Receive Date: 20090921
  Receipt Date: 20090908
  Transmission Date: 20100115
  Serious: Yes (Hospitalization)
  Sender: FDA-Public Use
  Company Number: DE-JNJFOC-20090901014

PATIENT
  Age: 59 Year
  Sex: Female
  Weight: 80 kg

DRUGS (6)
  1. REMICADE [Suspect]
     Indication: CROHN'S DISEASE
     Dosage: 5TH INFUSION
     Route: 042
     Dates: start: 20090401, end: 20090820
  2. FRANKINCENSE [Concomitant]
  3. BISOPROLOL FUMARATE [Concomitant]
     Indication: HYPERTENSION
  4. METFORMIN HCL [Concomitant]
     Indication: DIABETES MELLITUS
  5. FURORESE [Concomitant]
     Indication: HYPERTENSION
  6. DECORTIN [Concomitant]
     Indication: PREMEDICATION

REACTIONS (10)
  - AGITATION [None]
  - BRONCHOSPASM [None]
  - BURNING SENSATION [None]
  - CONFUSIONAL STATE [None]
  - DYSPNOEA [None]
  - HYPERSENSITIVITY [None]
  - HYPOTENSION [None]
  - INFUSION RELATED REACTION [None]
  - MALAISE [None]
  - RASH ERYTHEMATOUS [None]
